FAERS Safety Report 8987898 (Version 1)
Quarter: 2012Q4

REPORT INFORMATION
  Report Type: 
  Country: FR (occurrence: FR)
  Receive Date: 20121227
  Receipt Date: 20121227
  Transmission Date: 20130627
  Serious: Yes (Other)
  Sender: FDA-Public Use
  Company Number: FR-GLAXOSMITHKLINE-B0854512A

PATIENT
  Sex: Female

DRUGS (2)
  1. NIQUITIN [Suspect]
     Indication: EX-TOBACCO USER
     Dosage: 2MG See dosage text
     Route: 002
  2. NIQUITIN [Suspect]
     Indication: EX-TOBACCO USER
     Dosage: 4MG See dosage text
     Route: 002

REACTIONS (6)
  - Oropharyngeal pain [Not Recovered/Not Resolved]
  - Cough [Not Recovered/Not Resolved]
  - Cellulitis [Not Recovered/Not Resolved]
  - Off label use [Unknown]
  - Incorrect drug administration duration [Unknown]
  - Drug dependence [Not Recovered/Not Resolved]
